FAERS Safety Report 4557821-4 (Version None)
Quarter: 2005Q1

REPORT INFORMATION
  Report Type: 
  Country: None (occurrence: None)
  Receive Date: 20050118
  Receipt Date: 20050105
  Transmission Date: 20050727
  Serious: Yes (Hospitalization)
  Sender: FDA-Public Use
  Company Number: 6012469

PATIENT
  Age: 80 Year
  Sex: Female

DRUGS (6)
  1. CONCOR [Suspect]
     Indication: ESSENTIAL HYPERTENSION
     Dosage: 10,000 MG
     Route: 048
     Dates: start: 20040101
  2. SEROPRAM (ENTERIC-COATED) (CITALOPRAM HYDROBROMIDE) [Suspect]
     Dosage: 40,000 MG
     Route: 048
     Dates: start: 20040615
  3. XANAX [Concomitant]
  4. ASPIRIN [Concomitant]
  5. VIOXX [Suspect]
     Dosage: 12,500    MG   12.5MH 1 IN 1 D
     Route: 048
  6. MAGNISCARD   (MAGNNESIUM ASPARTATE HCL [Concomitant]

REACTIONS (7)
  - ANGINA UNSTABLE [None]
  - AORTIC VALVE DISEASE [None]
  - CEREBROVASCULAR ACCIDENT [None]
  - DILATATION ATRIAL [None]
  - MITRAL VALVE INCOMPETENCE [None]
  - MYOCARDIAL ISCHAEMIA [None]
  - PULMONARY HYPERTENSION [None]
